FAERS Safety Report 9144070 (Version 1)
Quarter: 2013Q1

REPORT INFORMATION
  Report Type: Spontaneous
  Country: CA (occurrence: CA)
  Receive Date: 20130306
  Receipt Date: 20130306
  Transmission Date: 20140127
  Serious: Yes (Hospitalization)
  Sender: FDA-Public Use
  Company Number: CA-GLAXOSMITHKLINE-A1014505A

PATIENT
  Sex: Female

DRUGS (5)
  1. VOTRIENT [Suspect]
     Indication: LEIOMYOSARCOMA METASTATIC
     Dosage: 800MG PER DAY
     Route: 048
     Dates: start: 20130122, end: 20130301
  2. LEVOTHYROXINE [Concomitant]
  3. DEXAMETHASONE [Concomitant]
  4. ONDANSETRON [Concomitant]
  5. LEVOFLOXACIN [Concomitant]

REACTIONS (1)
  - Malignant neoplasm progression [Not Recovered/Not Resolved]
